FAERS Safety Report 19382350 (Version 1)
Quarter: 2021Q2

REPORT INFORMATION
  Report Type: Spontaneous
  Country: CN (occurrence: CN)
  Receive Date: 20210607
  Receipt Date: 20210607
  Transmission Date: 20210717
  Serious: Yes (Other)
  Sender: FDA-Public Use
  Company Number: CN-TOPROL-2021000116

PATIENT
  Age: 82 Day
  Sex: Female
  Weight: 60 kg

DRUGS (2)
  1. METOPROLOL SUCCINATE. [Suspect]
     Active Substance: METOPROLOL SUCCINATE
     Route: 048
     Dates: start: 20210321, end: 20210513
  2. DIGOXIN. [Suspect]
     Active Substance: DIGOXIN
     Route: 065
     Dates: start: 20210321, end: 20210513

REACTIONS (2)
  - Atrioventricular block complete [Recovering/Resolving]
  - Product use in unapproved indication [Unknown]

NARRATIVE: CASE EVENT DATE: 20210321
